FAERS Safety Report 10432933 (Version 1)
Quarter: 2014Q3

REPORT INFORMATION
  Report Type: Spontaneous
  Country: US (occurrence: None)
  Receive Date: 20140904
  Receipt Date: 20140904
  Transmission Date: 20150326
  Serious: Yes (Life-Threatening, Hospitalization, Disabling)
  Sender: FDA-Public Use
  Company Number: None

PATIENT
  Age: 49 Year
  Sex: Female
  Weight: 47.3 kg

DRUGS (1)
  1. SAPHRIS [Suspect]
     Active Substance: ASENAPINE MALEATE
     Indication: BIPOLAR I DISORDER
     Dosage: ONLY TOOK A FEW DOSES PER PATIENT

REACTIONS (7)
  - Loss of consciousness [None]
  - Immobile [None]
  - Rhabdomyolysis [None]
  - Peripheral swelling [None]
  - Renal failure [None]
  - Leg amputation [None]
  - Crush injury [None]

NARRATIVE: CASE EVENT DATE: 20140318
